FAERS Safety Report 4502302-7 (Version None)
Quarter: 2004Q4

REPORT INFORMATION
  Report Type: 
  Country: None (occurrence: None)
  Receive Date: 20041116
  Receipt Date: 20041111
  Transmission Date: 20050328
  Serious: Yes (Hospitalization)
  Sender: FDA-Public Use
  Company Number: 2004/110128

PATIENT
  Age: 38 Year
  Sex: Female

DRUGS (8)
  1. PAXIL [Suspect]
     Indication: BIPOLAR DISORDER
     Dosage: 50MG TWICE PER DAY
     Route: 048
     Dates: start: 20040914, end: 20041027
  2. PEG-INTRON [Suspect]
     Indication: HEPATITIS C
     Dosage: 120MCG WEEKLY
     Route: 058
     Dates: start: 20040806
  3. REBETOL [Suspect]
     Indication: HEPATITIS C
     Dosage: 1000MG PER DAY
     Route: 048
     Dates: start: 20040806
  4. PROTONIX [Concomitant]
     Route: 048
  5. ROBINUL FORTE [Concomitant]
     Route: 048
  6. TRAZODONE HCL [Concomitant]
     Route: 048
  7. HYDROCHLORIDE FLUOXETINE [Concomitant]
     Route: 048
  8. WELCHOL [Concomitant]
     Route: 048

REACTIONS (4)
  - DRUG INTERACTION [None]
  - INSOMNIA [None]
  - MANIA [None]
  - SPEECH DISORDER [None]
